FAERS Safety Report 8828167 (Version 1)
Quarter: 2012Q4

REPORT INFORMATION
  Report Type: 
  Country: BR (occurrence: BR)
  Receive Date: 20121008
  Receipt Date: 20121008
  Transmission Date: 20130627
  Serious: Yes (Life-Threatening, Hospitalization, Other)
  Sender: FDA-Public Use
  Company Number: PHHY2012BR087705

PATIENT
  Age: 43 Year
  Sex: Male
  Weight: 170 kg

DRUGS (2)
  1. RASILEZ AMLO [Suspect]
     Indication: HYPERTENSION
     Dosage: 1 DF (1 tab of aliskiren and 1 tab of amlodipine), daily
     Route: 048
  2. CAPTOPRIL [Suspect]
     Dosage: 1 DF, daily

REACTIONS (2)
  - General physical condition abnormal [Unknown]
  - Blood pressure fluctuation [Unknown]
